FAERS Safety Report 10269967 (Version 1)
Quarter: 2014Q2

REPORT INFORMATION
  Report Type: Spontaneous
  Country: FR (occurrence: None)
  Receive Date: 20140625
  Receipt Date: 20140625
  Transmission Date: 20141212
  Serious: Yes (Hospitalization, Other)
  Sender: FDA-Public Use
  Company Number: NSR_01579_2014

PATIENT
  Age: 25 Year
  Sex: Male

DRUGS (1)
  1. BACLOFEN [Suspect]
     Indication: ALCOHOL ABUSE
     Route: 048

REACTIONS (4)
  - Toxicity to various agents [None]
  - Intentional overdose [None]
  - Hypertension [None]
  - Mydriasis [None]
